FAERS Safety Report 15456679 (Version 6)
Quarter: 2019Q3

REPORT INFORMATION
  Report Type: Spontaneous
  Country: US (occurrence: US)
  Receive Date: 20181002
  Receipt Date: 20190823
  Transmission Date: 20191004
  Serious: Yes (Hospitalization, Other)
  Sender: FDA-Public Use
  Company Number: US-PRINSTON PHARMACEUTICAL INC.-2018PRN01263

PATIENT
  Age: 92 Year
  Sex: Female
  Weight: 74.83 kg

DRUGS (31)
  1. LEVEMIR [Concomitant]
     Active Substance: INSULIN DETEMIR
     Dosage: 40 U, 1X/DAY
     Route: 058
  2. ALPRAZOLAM. [Concomitant]
     Active Substance: ALPRAZOLAM
     Dosage: 0.25 MG, 1X/DAY IN THE EVENING IF NEEDED
     Route: 048
  3. NOVOLOG [Concomitant]
     Active Substance: INSULIN ASPART
     Dosage: 15 U BEFORE MEALS
  4. SOTALOL. [Concomitant]
     Active Substance: SOTALOL
     Dosage: 80 MG, 1X/DAY EVERY MORNING
     Route: 048
  5. CEPHALEXIN. [Concomitant]
     Active Substance: CEPHALEXIN
     Dosage: 500 MG, 4X/DAY
     Route: 048
  6. BESIVANCE [Concomitant]
     Active Substance: BESIFLOXACIN
     Dosage: 1 DROP IN THE RIGHT EYE EVERY 2 HOURS (12X/DAY) UNTIL GONE
     Route: 047
  7. CLONIDINE. [Concomitant]
     Active Substance: CLONIDINE
     Dosage: 0.1 MG, 2X/DAY
     Route: 048
  8. GLIPIZIDE ER [Concomitant]
     Active Substance: GLIPIZIDE
     Dosage: 5 MG, 1X/DAY
     Route: 048
  9. HYDROCODONE; ACETAMINOPHEN [Concomitant]
     Dosage: 1 TABLETS, EVERY 6 HOURS AS NEEDED
     Route: 048
  10. ACTONEL [Concomitant]
     Active Substance: RISEDRONATE SODIUM
     Dosage: 150 MG, 1X/MONTH
     Route: 048
  11. CEFPROZIL. [Concomitant]
     Active Substance: CEFPROZIL
     Dosage: 250 MG, 2X/DAY
     Route: 048
  12. BASAGLAR [Concomitant]
     Active Substance: INSULIN GLARGINE
     Dosage: 14 U, 1X/DAY EVERY MORNING
  13. PRAVASTATIN. [Concomitant]
     Active Substance: PRAVASTATIN
     Dosage: 10 MG, 1X/DAY
     Route: 048
  14. CLOBETASOL PROPIONATE. [Concomitant]
     Active Substance: CLOBETASOL PROPIONATE
     Dosage: APPLY TO AFFECTED AREA, 2X/DAY
     Route: 061
  15. CEPHALEXIN. [Concomitant]
     Active Substance: CEPHALEXIN
     Dosage: 500 MG, 2X/DAY
  16. VALSARTAN. [Suspect]
     Active Substance: VALSARTAN
     Indication: BLOOD PRESSURE ABNORMAL
     Dosage: 25 MG, 2X/DAY
     Route: 065
     Dates: start: 20080802, end: 20180715
  17. NORTRIPTYLINE [Concomitant]
     Active Substance: NORTRIPTYLINE
     Dosage: 30 MG
     Route: 048
  18. TRIAMTERINE; HYDROCHLOROTHIAZIDE [Concomitant]
     Dosage: 1 TABLETS, 1X/DAY
     Route: 048
  19. SOTALOL. [Concomitant]
     Active Substance: SOTALOL
     Dosage: 40 MG, 1X/DAY EVERY EVENING
  20. WARFARIN [Concomitant]
     Active Substance: WARFARIN
     Dosage: 1 MG, 1X/DAY
     Route: 048
  21. HYDROCODONE; ACETAMINOPHEN [Concomitant]
     Dosage: 1 TABLETS, 2X/DAY AS NEEDED
     Route: 048
  22. LEVOFLOXAVIN [Concomitant]
     Dosage: 250 MG, 1X/DAY
     Route: 048
  23. CEPHALEXIN. [Concomitant]
     Active Substance: CEPHALEXIN
     Dosage: 250 MG, 4X/DAY
     Route: 048
  24. FENOFIBRATE. [Concomitant]
     Active Substance: FENOFIBRATE
     Dosage: 134 MG, 1X/DAY
     Route: 048
  25. WARFARIN SODIUM. [Concomitant]
     Active Substance: WARFARIN SODIUM
     Dosage: UNK, AS DIRECTED
     Route: 048
  26. JANUVIA [Concomitant]
     Active Substance: SITAGLIPTIN PHOSPHATE
     Dosage: 50 MG, 1X/DAY
     Route: 048
  27. PREDNISONE. [Concomitant]
     Active Substance: PREDNISONE
     Dosage: 40 MG DAILY 2 DAYS, 30 MG DAILY FOR 2 DAYS, 20 MG DAILY FOR 2 DAYS, 10 MG DAILY FOR 2 DAYS
     Route: 048
  28. CLOTRIMAZOLE; BETAMETHASONE [Concomitant]
     Dosage: APPLY TO AFFECTED AREA 2X/DAY
     Route: 061
  29. SINGULAIR [Concomitant]
     Active Substance: MONTELUKAST SODIUM
     Dosage: 10 MG, 1X/DAY
     Route: 048
  30. AMOXICILLIN. [Concomitant]
     Active Substance: AMOXICILLIN
     Dosage: 500 MG, 3X/DAY
     Route: 048
  31. CIPROFLOXACIN. [Concomitant]
     Active Substance: CIPROFLOXACIN
     Dosage: 500 MG, 2X/DAY
     Route: 048

REACTIONS (17)
  - Labile blood pressure [Unknown]
  - Scar [Not Recovered/Not Resolved]
  - Skin haemorrhage [Unknown]
  - Skin graft failure [Recovered/Resolved]
  - Actinic keratosis [Recovered/Resolved]
  - Hair growth abnormal [Not Recovered/Not Resolved]
  - Seborrhoeic keratosis [Unknown]
  - Eczema nummular [Unknown]
  - Skin cancer [Not Recovered/Not Resolved]
  - Recalled product administered [Recovered/Resolved]
  - Neoplasm skin [Unknown]
  - Wound [Recovered/Resolved]
  - Rash erythematous [Unknown]
  - Squamous cell carcinoma [Unknown]
  - Rash pruritic [Unknown]
  - Haematoma [Recovered/Resolved]
  - Basal cell carcinoma [Unknown]

NARRATIVE: CASE EVENT DATE: 2014
